FAERS Safety Report 7430308-7 (Version None)
Quarter: 2011Q2

REPORT INFORMATION
  Report Type: 
  Country: None (occurrence: None)
  Receive Date: 20110419
  Receipt Date: 20110419
  Transmission Date: 20111010
  Serious: Yes (Life-Threatening)
  Sender: FDA-Public Use
  Company Number: None

PATIENT
  Age: 44 Year
  Sex: Female
  Weight: 58.9676 kg

DRUGS (1)
  1. SINGULAIR [Suspect]
     Indication: ASTHMA
     Dosage: ONE TABLET ONCE DAILY PO
     Route: 048
     Dates: start: 20110401, end: 20110411

REACTIONS (5)
  - INSOMNIA [None]
  - DEPRESSION [None]
  - DECREASED ACTIVITY [None]
  - SUICIDAL IDEATION [None]
  - ANXIETY [None]
